FAERS Safety Report 14784176 (Version 3)
Quarter: 2018Q2

REPORT INFORMATION
  Report Type: Spontaneous
  Country: DE (occurrence: DE)
  Receive Date: 20180420
  Receipt Date: 20180502
  Transmission Date: 20180711
  Serious: Yes (Hospitalization)
  Sender: FDA-Public Use
  Company Number: DE-PFIZER INC-2018163531

PATIENT
  Age: 60 Year
  Sex: Female
  Weight: 75 kg

DRUGS (5)
  1. VIANI [Suspect]
     Active Substance: FLUTICASONE PROPIONATE\SALMETEROL XINAFOATE
     Dosage: 50/250 UG,QD
     Route: 055
  2. SALBUTAMOL [Suspect]
     Active Substance: ALBUTEROL
     Dosage: UNK
     Route: 055
  3. GYNOKADIN [Suspect]
     Active Substance: ESTRADIOL
     Dosage: UNK, QD
     Route: 055
  4. VITAMIN B COMPLEX NOS [Suspect]
     Active Substance: CYANOCOBALAMIN\PYRIDOXINE HYDROCHLORIDE\RIBOFLAVIN\SODIUM PANTOTHENATE\THIAMINE HYDROCHLORIDE\VITAMIN B COMPLEX
     Dosage: UNK, QD
     Route: 048
  5. PANTOPRAZOLE [Suspect]
     Active Substance: PANTOPRAZOLE
     Dosage: 20 MG, QD
     Route: 048

REACTIONS (6)
  - Nausea [Unknown]
  - Petechiae [Unknown]
  - Rash [Unknown]
  - Erythema [Unknown]
  - Product use issue [Unknown]
  - Dyspnoea [Unknown]
